FAERS Safety Report 5471558-9 (Version None)
Quarter: 2007Q3

REPORT INFORMATION
  Report Type: 
  Country: None (occurrence: None)
  Receive Date: 20070928
  Receipt Date: 20070110
  Transmission Date: 20080115
  Serious: No
  Sender: FDA-Public Use
  Company Number: US-BRISTOL-MYERS SQUIBB COMPANY-13638622

PATIENT
  Sex: Male

DRUGS (5)
  1. DEFINITY [Suspect]
     Indication: ECHOCARDIOGRAM
     Dosage: DILUTED DEFINITY-NOT SPECIFIED
     Dates: start: 20070110, end: 20070110
  2. HYDROCHLOROTHIAZIDE [Concomitant]
  3. LOSARTAN POSTASSIUM [Concomitant]
  4. METOPROLOL SUCCINATE [Concomitant]
  5. TAMSULOSIN HCL [Concomitant]

REACTIONS (2)
  - BACK PAIN [None]
  - HEADACHE [None]
